FAERS Safety Report 4307195-9 (Version None)
Quarter: 2004Q1

REPORT INFORMATION
  Report Type: 
  Country: None (occurrence: None)
  Receive Date: 20040224
  Receipt Date: 20040120
  Transmission Date: 20041129
  Serious: Yes (Hospitalization)
  Sender: FDA-Public Use
  Company Number: 04P-163-024677-00

PATIENT
  Age: 82 Year
  Sex: Female

DRUGS (5)
  1. DEPAKOTE ER 500 MG (DEPAKOTE ER) (DIVALPROEX SODIUM) [Suspect]
     Indication: BIPOLAR DISORDER
     Dosage: 500 MG, 1 IN 1 D, PER ORAL
     Route: 048
     Dates: start: 20040101, end: 20040119
  2. METOLAZONE [Concomitant]
  3. CITALOPRAM HYDROBROMIDE [Concomitant]
  4. ALPRAZOLAM [Concomitant]
  5. XELALON [Concomitant]

REACTIONS (1)
  - PANCREATITIS ACUTE [None]
